FAERS Safety Report 7622966-9 (Version None)
Quarter: 2011Q3

REPORT INFORMATION
  Report Type: 
  Country: None (occurrence: None)
  Receive Date: 20110720
  Receipt Date: 20110708
  Transmission Date: 20111222
  Serious: Yes (Hospitalization)
  Sender: FDA-Public Use
  Company Number: RU-JNJFOC-20110700790

PATIENT
  Sex: Female
  Weight: 63.6 kg

DRUGS (12)
  1. GOLIMUMAB [Suspect]
     Route: 058
  2. ISONIAZID [Concomitant]
     Indication: LATENT TUBERCULOSIS
     Route: 048
     Dates: start: 20061011
  3. GOLIMUMAB [Suspect]
     Indication: RHEUMATOID ARTHRITIS
     Route: 058
     Dates: start: 20061019, end: 20110530
  4. NIMESIL [Concomitant]
     Indication: RHEUMATOID ARTHRITIS
     Route: 048
     Dates: start: 20060101
  5. OMEZ [Concomitant]
     Indication: PROPHYLAXIS
     Route: 048
     Dates: start: 20050501
  6. CALCIUM VITAMINE D3 [Concomitant]
     Route: 048
  7. FLIXONASE [Concomitant]
     Indication: SEASONAL ALLERGY
     Route: 055
     Dates: start: 20080730
  8. FOLIC ACID [Concomitant]
     Indication: RHEUMATOID ARTHRITIS
     Dates: start: 20061021
  9. PLACEBO [Suspect]
     Indication: RHEUMATOID ARTHRITIS
     Route: 048
     Dates: start: 20061019, end: 20080110
  10. LISINOPRIL [Concomitant]
     Indication: HYPERTENSION
     Route: 048
     Dates: start: 20060101
  11. PREDNISOLONE [Concomitant]
     Dates: start: 20060915
  12. LEVOTHYROXINE SODIUM [Concomitant]
     Indication: HYPOTHYROIDISM
     Route: 048
     Dates: start: 20090901

REACTIONS (1)
  - HODGKIN'S DISEASE [None]
